FAERS Safety Report 8717300 (Version 2)
Quarter: 2012Q4

REPORT INFORMATION
  Report Type: 
  Country: US (occurrence: US)
  Receive Date: 20120810
  Receipt Date: 20121226
  Transmission Date: 20130627
  Serious: Yes (Other)
  Sender: FDA-Public Use
  Company Number: US-BAYER-2012-079365

PATIENT
  Age: 70 Year
  Sex: Female
  Weight: 109 kg

DRUGS (2)
  1. NEXAVAR [Suspect]
     Indication: CARCINOMA HEPATOCELLULAR
     Dosage: 200 mg, BID
     Route: 048
     Dates: start: 20120524, end: 2012
  2. NEXAVAR [Suspect]
     Indication: CARCINOMA HEPATOCELLULAR
     Dosage: 200mg am and 400mg pm
     Route: 048
     Dates: start: 2012

REACTIONS (1)
  - Candidiasis [None]
